FAERS Safety Report 10369268 (Version 1)
Quarter: 2014Q1

REPORT INFORMATION
  Report Type: Spontaneous
  Country: US (occurrence: None)
  Receive Date: 20140306
  Receipt Date: 20140306
  Transmission Date: 20141002
  Serious: Yes (Hospitalization)
  Sender: FDA-Public Use
  Company Number: 163-21880-13031292

PATIENT
  Age: 73 Year
  Sex: Male
  Weight: 75.39 kg

DRUGS (9)
  1. REVLIMID (LENALIDOMIDE) (5 MILLIGRAM, CAPSULES) [Suspect]
     Indication: PLASMA CELL MYELOMA
     Dosage: 5 MG, 21 IN 21 D, PO
     Route: 048
     Dates: start: 20130225, end: 20130302
  2. INSULIN (INSULIN) [Concomitant]
  3. GABAPENTIN (GABAPENTIN) [Concomitant]
  4. COMPAZINE (PROCHLORPERAZINE EDISYLSATE) [Concomitant]
  5. TAMSULOSIN (TAMSULOSIN) [Concomitant]
  6. TEMAZEPAM (TEMAZEPAM) [Concomitant]
  7. VICODIN (VICODIN) [Concomitant]
  8. FLUNCONAZOLE (FLUNCONAZOLE) [Concomitant]
  9. ALBUTEROL INHALER (SALBUTAMOL) [Concomitant]

REACTIONS (1)
  - Blood creatinine increased [None]
